FAERS Safety Report 9557242 (Version 1)
Quarter: 2013Q3

REPORT INFORMATION
  Report Type: Spontaneous
  Country: DK (occurrence: FR)
  Receive Date: 20130926
  Receipt Date: 20130926
  Transmission Date: 20140515
  Serious: Yes (Hospitalization)
  Sender: FDA-Public Use
  Company Number: FR-FRI-1000049133

PATIENT
  Age: 0 None
  Sex: Male

DRUGS (4)
  1. DINOPROSTONE [Suspect]
     Indication: INDUCED LABOUR
     Dosage: 10 MG
     Route: 064
     Dates: start: 20130724, end: 20130725
  2. CLAMOXYL [Suspect]
     Dosage: 3 GRAM
     Route: 064
     Dates: start: 20130724, end: 20130726
  3. OXYTOCIN [Suspect]
     Dosage: 15 THEN 30 THEN 45 ML PER HOUR
     Route: 064
  4. DONORMYL [Concomitant]
     Dosage: 1/4 TO 1/2 DAILY TAB
     Route: 064
     Dates: start: 2013

REACTIONS (5)
  - Status epilepticus [Recovered/Resolved with Sequelae]
  - Hypotonia [Recovered/Resolved with Sequelae]
  - Myoclonus [Recovered/Resolved with Sequelae]
  - Apgar score low [Recovered/Resolved]
  - Off label use [Recovered/Resolved]
